FAERS Safety Report 7145519-8 (Version None)
Quarter: 2010Q4

REPORT INFORMATION
  Report Type: 
  Country: None (occurrence: None)
  Receive Date: 20101208
  Receipt Date: 20101129
  Transmission Date: 20110411
  Serious: Yes (Hospitalization)
  Sender: FDA-Public Use
  Company Number: FR-JNJFOC-20101101493

PATIENT
  Age: 61 Year
  Sex: Female

DRUGS (2)
  1. REMICADE [Suspect]
     Indication: PSORIASIS
     Dosage: 5 MG/KG
     Route: 042
  2. REMICADE [Suspect]
     Route: 042

REACTIONS (5)
  - HYPOKINESIA [None]
  - MONOPARESIS [None]
  - MYALGIA [None]
  - PAIN IN EXTREMITY [None]
  - SOMATOFORM DISORDER [None]
